FAERS Safety Report 8984199 (Version 3)
Quarter: 2013Q1

REPORT INFORMATION
  Report Type: Report from Study
  Country: MW (occurrence: MW)
  Receive Date: 20121226
  Receipt Date: 20130102
  Transmission Date: 20140127
  Serious: Yes (Other)
  Sender: FDA-Public Use
  Company Number: MW-009507513-1212MWI009263

PATIENT
  Age: 22 Year
  Sex: Female
  Weight: 58.9 kg

DRUGS (8)
  1. EFAVIRENZ (+) EMTRICITABINE (+) TENOFOVIR DISOPROXIL FUMARATE [Suspect]
     Indication: HIV INFECTION
     Dosage: 600/200/300 MG, HS
     Route: 048
     Dates: start: 20120614
  2. BLEOMYCIN [Suspect]
     Indication: KAPOSI^S SARCOMA
     Dosage: 15 UNITS, QM
     Route: 042
     Dates: start: 20121113, end: 20121204
  3. DOXORUBICIN [Suspect]
     Indication: KAPOSI^S SARCOMA
     Dosage: 30 MG, QM
     Route: 042
     Dates: start: 20121113, end: 20121204
  4. VINCRISTINE SULFATE [Suspect]
     Indication: KAPOSI^S SARCOMA
     Dosage: 2 MG, QM
     Route: 042
     Dates: start: 20121113, end: 20121204
  5. DEXAMETHASONE [Suspect]
     Indication: KAPOSI^S SARCOMA
     Dosage: 8 MG, QM
     Route: 042
     Dates: start: 20121113, end: 20121204
  6. SULFAMETHOXAZOLE (+) TRIMETHOPRIM [Suspect]
     Indication: ANTIFUNGAL PROPHYLAXIS
     Dosage: UNK, BID
     Route: 048
     Dates: end: 20121218
  7. ETOPOSIDE [Suspect]
     Indication: HIV INFECTION
     Dosage: 7 DAYS IN A 2 WEEKS CYCLE
     Route: 048
     Dates: start: 20120615
  8. ETOPOSIDE [Suspect]
     Dosage: 7 DAYS IN A 2 WEEKS CYCLE
     Route: 048
     Dates: start: 20121004, end: 20121010

REACTIONS (1)
  - Neutrophil count decreased [Recovered/Resolved]
